FAERS Safety Report 16959356 (Version 2)
Quarter: 2020Q4

REPORT INFORMATION
  Report Type: Spontaneous
  Country: US (occurrence: US)
  Receive Date: 20191025
  Receipt Date: 20201026
  Transmission Date: 20210113
  Serious: Yes (Hospitalization, Other)
  Sender: FDA-Public Use
  Company Number: US-SUN PHARMACEUTICAL INDUSTRIES LTD-2019R1-225081

PATIENT
  Age: 3 Year
  Sex: Female
  Weight: 13.5 kg

DRUGS (6)
  1. FENTANYL. [Suspect]
     Active Substance: FENTANYL
     Dosage: 100 MCG
     Route: 042
  2. FENTANYL. [Suspect]
     Active Substance: FENTANYL
     Indication: SEDATION
     Dosage: 0.5 MCG/KG, 7 MCG ON DAY 0
     Route: 042
  3. MIDAZOLAM. [Concomitant]
     Active Substance: MIDAZOLAM
     Indication: ANALGESIC THERAPY
     Dosage: 5 MG
     Route: 042
  4. FENTANYL. [Suspect]
     Active Substance: FENTANYL
     Indication: ANALGESIC THERAPY
     Dosage: 1 MCG/KG, 15 MCG ON DAY 1
     Route: 042
  5. FENTANYL. [Suspect]
     Active Substance: FENTANYL
     Dosage: 2 MICROGRAM/KILOGRAM, 1DOSE/1HOUR
     Route: 042
  6. MIDAZOLAM. [Concomitant]
     Active Substance: MIDAZOLAM
     Indication: SEDATION
     Dosage: 1 MILLIGRAM, 1DOSE/1HOUR, DAY 1
     Route: 042

REACTIONS (1)
  - Brain oedema [Recovered/Resolved]
